FAERS Safety Report 6493050-5 (Version None)
Quarter: 2009Q4

REPORT INFORMATION
  Report Type: 
  Country: None (occurrence: None)
  Receive Date: 20091214
  Receipt Date: 20091203
  Transmission Date: 20100525
  Serious: Yes (Hospitalization)
  Sender: FDA-Public Use
  Company Number: DE-AMGEN-UK378115

PATIENT
  Age: 69 Year

DRUGS (8)
  1. NEULASTA [Suspect]
     Indication: CHEMOTHERAPY
  2. DOCETAXEL [Suspect]
     Route: 041
     Dates: start: 20090918
  3. EPIRUBICIN [Suspect]
     Route: 041
     Dates: start: 20090918
  4. CYCLOPHOSPHAMIDE [Suspect]
     Route: 042
     Dates: start: 20090918
  5. FORTZAAR [Concomitant]
     Route: 048
     Dates: start: 20050101
  6. BISOPROLOL [Concomitant]
     Route: 048
     Dates: start: 20050101
  7. SIMVASTATIN [Concomitant]
     Route: 048
     Dates: start: 20050101
  8. ASPIRIN [Concomitant]
     Route: 048
     Dates: start: 20050101

REACTIONS (3)
  - LEUKOPENIA [None]
  - NEUTROPENIA [None]
  - THROMBOCYTOPENIA [None]
